FAERS Safety Report 6075284-7 (Version None)
Quarter: 2009Q1

REPORT INFORMATION
  Report Type: 
  Country: None (occurrence: None)
  Receive Date: 20090212
  Receipt Date: 20090210
  Transmission Date: 20090719
  Serious: Yes (Death, Other)
  Sender: FDA-Public Use
  Company Number: PHBS2009DE00782

PATIENT
  Age: 57 Year
  Sex: Female

DRUGS (8)
  1. CYCLOSPORINE [Suspect]
     Indication: STEM CELL TRANSPLANT
  2. METHOTREXATE [Concomitant]
     Indication: STEM CELL TRANSPLANT
  3. ANTI-THYMOCYTE GLOBULIN NOS [Concomitant]
  4. FLUDARABINE PHOSPHATE [Concomitant]
  5. IRRADIATION [Concomitant]
     Dosage: 2GY
  6. ITRACONAZOLE [Concomitant]
  7. POSACONAZOLE [Concomitant]
  8. VORICONAZOLE [Concomitant]

REACTIONS (15)
  - BLISTER [None]
  - CARDIAC MURMUR [None]
  - CATHETER RELATED COMPLICATION [None]
  - ENDOCARDITIS [None]
  - FUSARIUM INFECTION [None]
  - MULTI-ORGAN FAILURE [None]
  - NECROSIS [None]
  - PYREXIA [None]
  - RASH MACULAR [None]
  - SEPTIC SHOCK [None]
  - SKIN HAEMORRHAGE [None]
  - SKIN INFECTION [None]
  - SUBCLAVIAN VEIN THROMBOSIS [None]
  - SYSTEMIC MYCOSIS [None]
  - TACHYARRHYTHMIA [None]
